FAERS Safety Report 5699587-0 (Version None)
Quarter: 2008Q2

REPORT INFORMATION
  Report Type: 
  Country: None (occurrence: None)
  Receive Date: 20080410
  Receipt Date: 20080328
  Transmission Date: 20081010
  Serious: No
  Sender: FDA-Public Use
  Company Number: FR-ELI_LILLY_AND_COMPANY-FR200804000816

PATIENT
  Age: 72 Year
  Sex: Male

DRUGS (7)
  1. ZYPREXA [Suspect]
     Dosage: 5 MG, DAILY (1/D)
     Route: 048
     Dates: start: 20070107
  2. ZYPREXA [Suspect]
     Dosage: 5 MG, DAILY (1/D)
     Dates: start: 20080107
  3. ZYPREXA [Suspect]
     Dosage: 10 MG, DAILY (1/D)
     Dates: start: 20080107
  4. ZYPREXA [Suspect]
     Dosage: 10 MG, DAILY (1/D)
  5. TERALITHE [Concomitant]
     Indication: BIPOLAR I DISORDER
     Dosage: UNK, UNK
  6. TERALITHE [Concomitant]
     Dosage: UNK, UNK
     Dates: start: 20080107
  7. TERALITHE [Concomitant]
     Dosage: UNK, UNK

REACTIONS (3)
  - ECCHYMOSIS [None]
  - PLATELET COUNT DECREASED [None]
  - PLATELET COUNT INCREASED [None]
